FAERS Safety Report 11631762 (Version 3)
Quarter: 2015Q4

REPORT INFORMATION
  Report Type: Spontaneous
  Country: US (occurrence: US)
  Receive Date: 20151015
  Receipt Date: 20151020
  Transmission Date: 20160304
  Serious: No
  Sender: FDA-Public Use
  Company Number: US-AUROBINDO-AUR-APL-2015-09383

PATIENT
  Sex: Male

DRUGS (1)
  1. PARACETAMOL+DEXTROMETHORPHAN+PHENYLEPHRINE LIQUID [Suspect]
     Active Substance: ACETAMINOPHEN\DEXTROMETHORPHAN\PHENYLEPHRINE
     Indication: PRODUCT USED FOR UNKNOWN INDICATION
     Dosage: UNK
     Route: 065

REACTIONS (6)
  - Crepitations [Recovered/Resolved]
  - Drug hypersensitivity [Recovered/Resolved]
  - Ear pruritus [Recovered/Resolved]
  - Wheezing [Recovered/Resolved]
  - Hypoaesthesia [Recovered/Resolved]
  - Pruritus [Recovered/Resolved]
